FAERS Safety Report 16241861 (Version 1)
Quarter: 2019Q2

REPORT INFORMATION
  Report Type: Report from Study
  Country: GB (occurrence: GB)
  Receive Date: 20190426
  Receipt Date: 20190426
  Transmission Date: 20190711
  Serious: Yes (Disabling)
  Sender: FDA-Public Use
  Company Number: GB-IPSEN BIOPHARMACEUTICALS, INC.-2019-05798

PATIENT
  Age: 59 Year
  Sex: Female
  Weight: 52 kg

DRUGS (9)
  1. DOMEPERIDONE [Concomitant]
     Indication: MENIERE^S DISEASE
     Dosage: 84 TABLET, ONE UP TO 3 TIMES/DAY FOR NO MORE THAN A WEEK
     Dates: start: 20170804
  2. QVAR [Concomitant]
     Active Substance: BECLOMETHASONE DIPROPIONATE
     Dosage: 1-2 PUFFS TWICE DAY. RINSE MOUTH AFTER USE.
     Dates: start: 20110517
  3. BETAHISTINE [Concomitant]
     Active Substance: BETAHISTINE
     Indication: MENIERE^S DISEASE
     Dosage: 168 TABLET
     Dates: start: 20120517
  4. EVOREL [Concomitant]
     Dosage: 50 PATCHES (24 PATCH-APPLY TWICE WEEKLY)
     Dates: start: 20160317
  5. LEVOTHYROXINE SODIUM. [Concomitant]
     Active Substance: LEVOTHYROXINE SODIUM
     Dosage: 56 TABLETS
     Route: 048
     Dates: start: 20120126
  6. LEVOTHYROXINE SODIUM. [Concomitant]
     Active Substance: LEVOTHYROXINE SODIUM
     Indication: HYPOTHYROIDISM
     Dosage: 56 TABLETS
     Route: 048
     Dates: start: 20111222
  7. SOMATULINE AUTOGEL 120MG [Suspect]
     Active Substance: LANREOTIDE ACETATE
     Indication: NEUROENDOCRINE TUMOUR
     Dosage: 120 MG/0.5 ML
     Route: 065
     Dates: start: 201707
  8. AMITRIPTYLINE [Concomitant]
     Active Substance: AMITRIPTYLINE
     Dosage: 56 TABLETS, TWO AT NIGHT.
     Dates: start: 20060926
  9. PROGESTERONE MICRONIZED [Concomitant]
     Dosage: 60 CAPSULES, 2 AT NIGHT FROM DAY 19-28 OF CYCLE
     Dates: start: 20151118

REACTIONS (1)
  - Headache [Not Recovered/Not Resolved]

NARRATIVE: CASE EVENT DATE: 20180130
